FAERS Safety Report 15160610 (Version 1)
Quarter: 2018Q3

REPORT INFORMATION
  Report Type: Spontaneous
  Country: DE (occurrence: DE)
  Receive Date: 20180718
  Receipt Date: 20180718
  Transmission Date: 20181010
  Serious: Yes (Other)
  Sender: FDA-Public Use
  Company Number: DE-SAKK-2018SA184050AA

PATIENT
  Sex: Female

DRUGS (2)
  1. LEMTRADA [Suspect]
     Active Substance: ALEMTUZUMAB
     Dosage: UNK
     Route: 041
  2. LEMTRADA [Suspect]
     Active Substance: ALEMTUZUMAB
     Dosage: UNK

REACTIONS (4)
  - Hepatic failure [Unknown]
  - Multiple sclerosis relapse [Unknown]
  - Alanine aminotransferase increased [Unknown]
  - Autoimmune hepatitis [Unknown]
